FAERS Safety Report 13679939 (Version 1)
Quarter: 2017Q2

REPORT INFORMATION
  Report Type: Report from Study
  Country: BR (occurrence: BR)
  Receive Date: 20170622
  Receipt Date: 20170622
  Transmission Date: 20170830
  Serious: Yes (Other)
  Sender: FDA-Public Use
  Company Number: PHHY2017BR088492

PATIENT
  Sex: Male
  Weight: 160 kg

DRUGS (2)
  1. CO-DIOVAN [Suspect]
     Active Substance: HYDROCHLOROTHIAZIDE\VALSARTAN
     Indication: HYPERTENSION
     Dosage: 1 DF (HYDROCHLOROTHIAZIDE 12.5MG AND VALSARTAN 160 MG), QD
     Route: 048
     Dates: end: 20170612
  2. CO-DIOVAN [Suspect]
     Active Substance: HYDROCHLOROTHIAZIDE\VALSARTAN
     Indication: CARDIAC DISORDER

REACTIONS (4)
  - Neoplasm malignant [Unknown]
  - Product use in unapproved indication [Unknown]
  - Cardiac valve disease [Unknown]
  - Heart rate decreased [Unknown]
